FAERS Safety Report 24812148 (Version 1)
Quarter: 2025Q1

REPORT INFORMATION
  Report Type: Spontaneous
  Country: US (occurrence: None)
  Receive Date: 20250106
  Receipt Date: 20250106
  Transmission Date: 20250409
  Serious: Yes (Other)
  Sender: FDA-CTU
  Company Number: None

PATIENT
  Age: 43 Year
  Sex: Female
  Weight: 77.85 kg

DRUGS (11)
  1. MODAFINIL [Suspect]
     Active Substance: MODAFINIL
     Indication: Disturbance in attention
     Route: 048
     Dates: start: 20241214, end: 20241231
  2. MODAFINIL [Suspect]
     Active Substance: MODAFINIL
     Indication: Poor quality sleep
  3. WELLBUTRIN [Concomitant]
     Active Substance: BUPROPION HYDROCHLORIDE
  4. BUSPAR [Concomitant]
     Active Substance: BUSPIRONE HYDROCHLORIDE
  5. DOXEPIN [Concomitant]
     Active Substance: DOXEPIN
  6. cpap for sleep apnea [Concomitant]
  7. VITAMINS [Concomitant]
     Active Substance: VITAMINS
  8. MAGNESIUM [Concomitant]
     Active Substance: MAGNESIUM
  9. VITAMIN C [Concomitant]
     Active Substance: ASCORBIC ACID
  10. PROBIOTICS NOS [Concomitant]
     Active Substance: PROBIOTICS NOS
  11. DIETARY SUPPLEMENT [Concomitant]
     Active Substance: DIETARY SUPPLEMENT

REACTIONS (11)
  - Headache [None]
  - Flushing [None]
  - Myalgia [None]
  - Viral infection [None]
  - Hypotension [None]
  - Therapy interrupted [None]
  - Urticaria [None]
  - Nausea [None]
  - Adverse drug reaction [None]
  - Muscle spasms [None]
  - Feeling abnormal [None]

NARRATIVE: CASE EVENT DATE: 20241225
